FAERS Safety Report 8055183-1 (Version None)
Quarter: 2012Q1

REPORT INFORMATION
  Report Type: 
  Country: None (occurrence: None)
  Receive Date: 20120119
  Receipt Date: 20120118
  Transmission Date: 20120608
  Serious: Yes (Death, Other)
  Sender: FDA-Public Use
  Company Number: PHFR2010IE01690

PATIENT
  Sex: Male

DRUGS (3)
  1. CHEMOTHERAPEUTICS NOS [Concomitant]
  2. EFFEXOR [Concomitant]
     Indication: DEPRESSION
     Dosage: 150 MG, QD
     Route: 048
  3. CLOZARIL [Suspect]
     Route: 048
     Dates: start: 20050919

REACTIONS (4)
  - NEUTROPHIL COUNT INCREASED [None]
  - GASTROINTESTINAL CARCINOMA [None]
  - WHITE BLOOD CELL COUNT INCREASED [None]
  - SEPSIS [None]
